FAERS Safety Report 24726172 (Version 4)
Quarter: 2025Q1

REPORT INFORMATION
  Report Type: Report from Study
  Country: EG (occurrence: EG)
  Receive Date: 20241212
  Receipt Date: 20250201
  Transmission Date: 20250408
  Serious: Yes (Hospitalization, Disabling)
  Sender: ROCHE
  Company Number: EG-ROCHE-10000148634

PATIENT
  Age: 26 Year
  Sex: Female

DRUGS (2)
  1. OCREVUS [Suspect]
     Active Substance: OCRELIZUMAB
     Indication: Multiple sclerosis
     Route: 040
     Dates: start: 20230530
  2. SOLU-MEDROL [Suspect]
     Active Substance: METHYLPREDNISOLONE SODIUM SUCCINATE
     Indication: Product used for unknown indication
     Route: 040

REACTIONS (9)
  - Muscular weakness [Not Recovered/Not Resolved]
  - Infusion related reaction [Recovered/Resolved]
  - Maternal exposure before pregnancy [Unknown]
  - Generalised oedema [Recovered/Resolved]
  - Dysphemia [Not Recovered/Not Resolved]
  - Multiple sclerosis [Recovered/Resolved with Sequelae]
  - Urinary incontinence [Not Recovered/Not Resolved]
  - Headache [Not Recovered/Not Resolved]
  - Joint stiffness [Not Recovered/Not Resolved]

NARRATIVE: CASE EVENT DATE: 20241215
